FAERS Safety Report 14334412 (Version 1)
Quarter: 2017Q4

REPORT INFORMATION
  Report Type: Spontaneous
  Country: US (occurrence: US)
  Receive Date: 20171228
  Receipt Date: 20171228
  Transmission Date: 20180321
  Serious: Yes (Death, Hospitalization)
  Sender: FDA-Public Use
  Company Number: US-GILEAD-2017-0305717

PATIENT
  Sex: Male
  Weight: 77.98 kg

DRUGS (2)
  1. ZYDELIG [Suspect]
     Active Substance: IDELALISIB
     Indication: CHRONIC LYMPHOCYTIC LEUKAEMIA
     Route: 065
  2. IMBRUVICA [Concomitant]
     Active Substance: IBRUTINIB

REACTIONS (6)
  - Thrombocytopenia [Unknown]
  - Diarrhoea [Unknown]
  - Arrhythmia [Fatal]
  - Haemorrhage [Unknown]
  - Hypercalcaemia [Unknown]
  - White blood cell count increased [Recovering/Resolving]

NARRATIVE: CASE EVENT DATE: 2000
